FAERS Safety Report 22381510 (Version 1)
Quarter: 2023Q2

REPORT INFORMATION
  Report Type: Spontaneous
  Country: SE (occurrence: SE)
  Receive Date: 20230530
  Receipt Date: 20230530
  Transmission Date: 20230721
  Serious: Yes (Other)
  Sender: FDA-Public Use
  Company Number: SE-BRISTOL-MYERS SQUIBB COMPANY-2023-042656

PATIENT
  Sex: Female

DRUGS (1)
  1. ELIQUIS [Suspect]
     Active Substance: APIXABAN
     Indication: Deep vein thrombosis
     Route: 048

REACTIONS (11)
  - Lymphadenopathy [Recovered/Resolved]
  - Headache [Unknown]
  - Dizziness [Unknown]
  - Nausea [Recovered/Resolved]
  - Rash [Recovered/Resolved]
  - Paraesthesia [Unknown]
  - Pulse abnormal [Unknown]
  - Myalgia [Unknown]
  - Mouth haemorrhage [Unknown]
  - Pelvic venous thrombosis [Unknown]
  - Ankle fracture [Unknown]

NARRATIVE: CASE EVENT DATE: 20221116
